FAERS Safety Report 5557616-9 (Version None)
Quarter: 2007Q4

REPORT INFORMATION
  Report Type: 
  Country: None (occurrence: None)
  Receive Date: 20071214
  Receipt Date: 20071205
  Transmission Date: 20080405
  Serious: Yes (Death, Hospitalization)
  Sender: FDA-Public Use
  Company Number: B0493090A

PATIENT
  Age: 67 Year
  Sex: Female
  Weight: 50 kg

DRUGS (8)
  1. ARIXTRA [Suspect]
     Indication: THROMBOSIS PROPHYLAXIS
     Dosage: 2.5MG PER DAY
     Route: 058
     Dates: start: 20071009, end: 20071014
  2. LOVENOX [Suspect]
     Indication: THROMBOSIS PROPHYLAXIS
     Dosage: .4ML PER DAY
     Route: 058
     Dates: start: 20071002, end: 20071008
  3. NIVAQUINE [Concomitant]
     Indication: RHEUMATOID ARTHRITIS
     Dosage: 100MG TWICE PER DAY
     Route: 048
     Dates: end: 20071014
  4. CONTRAMAL [Concomitant]
     Indication: RHEUMATOID ARTHRITIS
     Dosage: 100MG TWICE PER DAY
     Route: 048
     Dates: start: 20071011, end: 20071014
  5. INDOCIN [Concomitant]
     Indication: RHEUMATOID ARTHRITIS
     Dosage: 100MG PER DAY
     Route: 054
     Dates: end: 20071012
  6. COVERSYL [Concomitant]
     Indication: CARDIAC FAILURE
     Dosage: 4MG TWICE PER DAY
     Route: 048
     Dates: start: 20071009, end: 20071014
  7. LASIX [Concomitant]
     Indication: CARDIAC FAILURE
     Dosage: 40MG TWICE PER DAY
     Route: 042
     Dates: start: 20071009, end: 20071011
  8. SINGULAIR [Concomitant]
     Indication: CARDIAC FAILURE
     Dosage: 10MG PER DAY
     Route: 048
     Dates: end: 20071013

REACTIONS (9)
  - DYSPNOEA [None]
  - GENERAL PHYSICAL HEALTH DETERIORATION [None]
  - HAEMATOMA [None]
  - HAEMOGLOBIN DECREASED [None]
  - HYPERKALAEMIA [None]
  - MUSCLE HAEMORRHAGE [None]
  - POSTOPERATIVE RENAL FAILURE [None]
  - RENAL FAILURE ACUTE [None]
  - SHOCK HAEMORRHAGIC [None]
